FAERS Safety Report 12456341 (Version 1)
Quarter: 2016Q2

REPORT INFORMATION
  Report Type: Spontaneous
  Country: US (occurrence: US)
  Receive Date: 20160610
  Receipt Date: 20160610
  Transmission Date: 20160815
  Serious: No
  Sender: FDA-Public Use
  Company Number: US-BAYER-2016-113437

PATIENT
  Age: 54 Year
  Sex: Female

DRUGS (3)
  1. ULTRAVIST [Suspect]
     Active Substance: IOPROMIDE
     Indication: ABDOMINAL PAIN
     Dosage: 100 ML, ONCE
     Dates: start: 20160603, end: 20160603
  2. ULTRAVIST [Suspect]
     Active Substance: IOPROMIDE
     Indication: MASS
  3. ULTRAVIST [Suspect]
     Active Substance: IOPROMIDE
     Indication: NEOPLASM MALIGNANT

REACTIONS (6)
  - Vomiting [None]
  - Urticaria [None]
  - Tongue pruritus [None]
  - Malaise [None]
  - Pruritus [None]
  - Nausea [None]

NARRATIVE: CASE EVENT DATE: 20160603
